FAERS Safety Report 25301253 (Version 1)
Quarter: 2025Q2

REPORT INFORMATION
  Report Type: Spontaneous
  Country: US (occurrence: None)
  Receive Date: 20250509
  Receipt Date: 20250509
  Transmission Date: 20250717
  Serious: Yes (Life-Threatening, Hospitalization)
  Sender: FDA-CTU
  Company Number: None

PATIENT
  Age: 70 Year

DRUGS (4)
  1. GLOFITAMAB [Suspect]
     Active Substance: GLOFITAMAB
  2. acetaminophen 650 mg PO [Concomitant]
  3. diphenhydramine 50 mg capsule PO [Concomitant]
  4. Dexamethasone 20 mg IV [Concomitant]

REACTIONS (3)
  - Infusion related reaction [None]
  - Tachycardia [None]
  - Immune effector cell-associated neurotoxicity syndrome [None]

NARRATIVE: CASE EVENT DATE: 20250502
